FAERS Safety Report 19866770 (Version 1)
Quarter: 2021Q3

REPORT INFORMATION
  Report Type: Spontaneous
  Country: US (occurrence: US)
  Receive Date: 20210921
  Receipt Date: 20210921
  Transmission Date: 20211014
  Serious: Yes (Other)
  Sender: FDA-Public Use
  Company Number: NVSC2021US207622

PATIENT
  Sex: Female

DRUGS (3)
  1. VOTRIENT [Suspect]
     Active Substance: PAZOPANIB HYDROCHLORIDE
     Indication: BREAST CANCER FEMALE
     Dosage: 2 DF, QD (FROM DAY 1 TO 7)
     Route: 048
     Dates: start: 202108
  2. VOTRIENT [Suspect]
     Active Substance: PAZOPANIB HYDROCHLORIDE
     Dosage: 4 DF, QD (FROM DAY 15)
     Route: 048
  3. VOTRIENT [Suspect]
     Active Substance: PAZOPANIB HYDROCHLORIDE
     Indication: BREAST CANCER FEMALE
     Dosage: 3 DF, QD (FROM DAY 8 TO 14)
     Route: 048

REACTIONS (4)
  - Nausea [Unknown]
  - Neuropathy peripheral [Unknown]
  - Taste disorder [Unknown]
  - Fatigue [Unknown]
